FAERS Safety Report 25647134 (Version 2)
Quarter: 2025Q3

REPORT INFORMATION
  Report Type: Spontaneous
  Country: JP (occurrence: JP)
  Receive Date: 20250806
  Receipt Date: 20250822
  Transmission Date: 20251020
  Serious: Yes (Other)
  Sender: Ocuvex Therapeutics
  Company Number: JP-SANTENLTD-2025-JPN-007283

PATIENT
  Age: 60 Year
  Sex: Female

DRUGS (1)
  1. OMIDENEPAG ISOPROPYL [Suspect]
     Active Substance: OMIDENEPAG ISOPROPYL
     Indication: Open angle glaucoma
     Dosage: ONCE A DAY, 1 DROP FOR BOTH EYES
     Route: 061
     Dates: start: 20250704, end: 20250722

REACTIONS (1)
  - Corneal erosion [Recovered/Resolved]

NARRATIVE: CASE EVENT DATE: 20250722
